FAERS Safety Report 7020799-8 (Version None)
Quarter: 2010Q3

REPORT INFORMATION
  Report Type: 
  Country: None (occurrence: None)
  Receive Date: 20100927
  Receipt Date: 20100916
  Transmission Date: 20110219
  Serious: Yes (Hospitalization)
  Sender: FDA-Public Use
  Company Number: 017705

PATIENT
  Sex: Male

DRUGS (4)
  1. KEPPRA [Suspect]
     Indication: EPILEPSY
     Dosage: (1500 MG, 500MG TABLETS ORAL)
     Route: 048
     Dates: start: 20100506, end: 20100802
  2. FRISIUM [Concomitant]
  3. ANTRA /00661201/ [Concomitant]
  4. KCL-RETARD [Concomitant]

REACTIONS (1)
  - DRUG RASH WITH EOSINOPHILIA AND SYSTEMIC SYMPTOMS [None]
